FAERS Safety Report 17081099 (Version 1)
Quarter: 2019Q4

REPORT INFORMATION
  Report Type: Spontaneous
  Country: US (occurrence: US)
  Receive Date: 20191029
  Receipt Date: 20191029
  Transmission Date: 20200122
  Serious: Yes (Other)
  Sender: FDA-Public Use
  Company Number: None

PATIENT
  Age: 36 Year
  Sex: Male
  Weight: 83.91 kg

DRUGS (1)
  1. LAMOTRIGINE. [Suspect]
     Active Substance: LAMOTRIGINE
     Indication: EPILEPSY
     Dosage: ?          QUANTITY:120 TABS 2X2 DAILY;?
     Route: 048
     Dates: start: 20190801, end: 20190824

REACTIONS (6)
  - Confusional state [None]
  - Product substitution issue [None]
  - Seizure [None]
  - Hypersomnia [None]
  - Anger [None]
  - Condition aggravated [None]

NARRATIVE: CASE EVENT DATE: 20190821
